FAERS Safety Report 22636507 (Version 1)
Quarter: 2023Q2

REPORT INFORMATION
  Report Type: Spontaneous
  Country: US (occurrence: US)
  Receive Date: 20230623
  Receipt Date: 20230623
  Transmission Date: 20230721
  Serious: No
  Sender: FDA-Public Use
  Company Number: US-PFIZER INC-202300229571

PATIENT
  Age: 10 Year
  Sex: Female
  Weight: 31.75 kg

DRUGS (1)
  1. OXBRYTA [Suspect]
     Active Substance: VOXELOTOR
     Indication: Sickle cell disease
     Dosage: 600 MG, 1X/DAY (MIX TWO TABLETS FOR 600MG IN 10ML CLEAR ROOM TEMPERATURE AND DRINK LIQUID)
     Route: 048
     Dates: start: 20230610

REACTIONS (2)
  - Constipation [Unknown]
  - Flatulence [Unknown]

NARRATIVE: CASE EVENT DATE: 20230619
